FAERS Safety Report 8041916-7 (Version None)
Quarter: 2012Q1

REPORT INFORMATION
  Report Type: 
  Country: None (occurrence: None)
  Receive Date: 20120112
  Receipt Date: 20120112
  Transmission Date: 20120608
  Serious: Yes (Other)
  Sender: FDA-Public Use
  Company Number: None

PATIENT
  Age: 39 Year
  Sex: Male
  Weight: 81.646 kg

DRUGS (1)
  1. PROPECIA [Suspect]

REACTIONS (5)
  - LIBIDO DECREASED [None]
  - SEMEN VOLUME DECREASED [None]
  - FEELING ABNORMAL [None]
  - SEXUAL DYSFUNCTION [None]
  - EJACULATION DISORDER [None]
